FAERS Safety Report 12160649 (Version 1)
Quarter: 2016Q1

REPORT INFORMATION
  Report Type: Spontaneous
  Country: US (occurrence: US)
  Receive Date: 20160308
  Receipt Date: 20160308
  Transmission Date: 20160526
  Serious: Yes (Hospitalization, Other)
  Sender: FDA-Public Use
  Company Number: US-AMGEN-USASP2016027189

PATIENT
  Age: 32 Year
  Sex: Female

DRUGS (1)
  1. NEUPOGEN [Suspect]
     Active Substance: FILGRASTIM
     Indication: IDIOPATHIC NEUTROPENIA
     Dosage: 300 MUG/ML, QWK
     Route: 065

REACTIONS (2)
  - Salmonellosis [Unknown]
  - Maternal exposure during pregnancy [Unknown]
